FAERS Safety Report 6519518-0 (Version None)
Quarter: 2009Q4

REPORT INFORMATION
  Report Type: 
  Country: None (occurrence: None)
  Receive Date: 20091228
  Receipt Date: 20091218
  Transmission Date: 20100525
  Serious: Yes (Hospitalization)
  Sender: FDA-Public Use
  Company Number: NO-ABBOTT-09P-122-0615149-00

PATIENT
  Sex: Female
  Weight: 46 kg

DRUGS (2)
  1. HUMIRA [Suspect]
     Indication: CROHN'S DISEASE
     Route: 058
     Dates: start: 20090925
  2. YASMIN [Concomitant]
     Indication: CONTRACEPTION
     Dates: start: 20090918

REACTIONS (2)
  - PALPITATIONS [None]
  - SLEEP DISORDER [None]
